FAERS Safety Report 10051410 (Version 1)
Quarter: 2014Q2

REPORT INFORMATION
  Report Type: Spontaneous
  Country: US (occurrence: US)
  Receive Date: 20140401
  Receipt Date: 20140401
  Transmission Date: 20141212
  Serious: No
  Sender: FDA-Public Use
  Company Number: US-PFIZER INC-2014090783

PATIENT
  Age: 15 Year
  Sex: Female

DRUGS (2)
  1. GEODON [Suspect]
     Indication: PSYCHOTIC DISORDER
     Dosage: UNK
  2. GEODON [Suspect]
     Indication: SCHIZOPHRENIA

REACTIONS (2)
  - Activities of daily living impaired [Unknown]
  - Drug ineffective [Unknown]
